FAERS Safety Report 8835890 (Version 2)
Quarter: 2012Q4

REPORT INFORMATION
  Report Type: 
  Country: US (occurrence: US)
  Receive Date: 20121011
  Receipt Date: 20121211
  Transmission Date: 20130627
  Serious: Yes (Other)
  Sender: FDA-Public Use
  Company Number: US-PFIZER INC-2012250319

PATIENT
  Sex: Male

DRUGS (1)
  1. LYRICA [Suspect]
     Indication: FIBROMYALGIA
     Dosage: UNK
     Dates: start: 2007

REACTIONS (8)
  - Hypoacusis [Unknown]
  - Back disorder [Unknown]
  - Pain in extremity [Unknown]
  - Drug ineffective [Unknown]
  - Dry mouth [Unknown]
  - Somnolence [Unknown]
  - Pain [Unknown]
  - Malaise [Unknown]
